FAERS Safety Report 26125417 (Version 1)
Quarter: 2025Q4

REPORT INFORMATION
  Report Type: Spontaneous
  Country: US (occurrence: None)
  Receive Date: 20251204
  Receipt Date: 20251204
  Transmission Date: 20260117
  Serious: Yes (Other)
  Sender: FDA-CTU
  Company Number: None

PATIENT
  Age: 55 Year
  Sex: Female
  Weight: 104.33 kg

DRUGS (2)
  1. WEGOVY [Suspect]
     Active Substance: SEMAGLUTIDE
  2. Woman one a day vitamin [Concomitant]

REACTIONS (4)
  - Ocular discomfort [None]
  - Visual impairment [None]
  - Arthralgia [None]
  - Vision blurred [None]

NARRATIVE: CASE EVENT DATE: 20251015
